FAERS Safety Report 8601556-5 (Version None)
Quarter: 2012Q3

REPORT INFORMATION
  Report Type: 
  Country: None (occurrence: None)
  Receive Date: 20120817
  Receipt Date: 20111114
  Transmission Date: 20120928
  Serious: No
  Sender: FDA-Public Use
  Company Number: US-BRISTOL-MYERS SQUIBB COMPANY-16230542

PATIENT
  Age: 54 Year
  Sex: Female
  Weight: 77 kg

DRUGS (1)
  1. SPRYCEL [Suspect]
     Indication: CHRONIC MYELOID LEUKAEMIA
     Dosage: ALSO 1D6053B EXP DATE: APR2014
     Dates: start: 20110610

REACTIONS (8)
  - RASH [None]
  - SLEEP DISORDER [None]
  - DECREASED APPETITE [None]
  - NAUSEA [None]
  - DIARRHOEA [None]
  - FATIGUE [None]
  - HEADACHE [None]
  - COUGH [None]
